FAERS Safety Report 24073220 (Version 1)
Quarter: 2024Q3

REPORT INFORMATION
  Report Type: Spontaneous
  Country: BE (occurrence: BE)
  Receive Date: 20240710
  Receipt Date: 20240710
  Transmission Date: 20241017
  Serious: Yes (Death, Other)
  Sender: MYLAN
  Company Number: BE-MYLANLABS-2024M1063713

PATIENT
  Age: 31 Year
  Sex: Female

DRUGS (5)
  1. PACLITAXEL [Suspect]
     Active Substance: PACLITAXEL
     Indication: Triple negative breast cancer
     Dosage: UNK, CYCLE (FOR 4?CYCLES)
     Route: 065
  2. BEVACIZUMAB [Suspect]
     Active Substance: BEVACIZUMAB
     Indication: Triple negative breast cancer
     Dosage: UNK, CYCLE (FOR 4?CYCLES)
     Route: 065
  3. ONARTUZUMAB [Suspect]
     Active Substance: ONARTUZUMAB
     Indication: Triple negative breast cancer
     Dosage: UNK, CYCLE (FOR 4 CYCLES)
     Route: 065
  4. FLUOROURACIL [Concomitant]
     Active Substance: FLUOROURACIL
     Indication: Triple negative breast cancer
     Dosage: UNK, CYCLE (FOR 8 CYCLES)
     Route: 065
  5. VINORELBINE [Concomitant]
     Active Substance: VINORELBINE TARTRATE
     Indication: Triple negative breast cancer
     Dosage: UNK, CYCLE (FOR 8 CYCLES)
     Route: 065

REACTIONS (1)
  - Drug ineffective [Fatal]
